FAERS Safety Report 8966290 (Version 2)
Quarter: 2013Q1

REPORT INFORMATION
  Report Type: Spontaneous
  Country: DE (occurrence: DE)
  Receive Date: 20121217
  Receipt Date: 20130201
  Transmission Date: 20140127
  Serious: Yes (Death, Congenital Anomaly)
  Sender: FDA-Public Use
  Company Number: DE-UCBSA-072821

PATIENT
  Sex: 0

DRUGS (3)
  1. KEPPRA [Suspect]
     Route: 050
  2. KEPPRA [Suspect]
     Route: 050
  3. NO CONCOMITANT MEDICATION [Concomitant]

REACTIONS (3)
  - Foetal malformation [Fatal]
  - Exposure via father [Recovered/Resolved]
  - Foetal exposure during pregnancy [Recovered/Resolved]
